FAERS Safety Report 21505332 (Version 2)
Quarter: 2022Q4

REPORT INFORMATION
  Report Type: Spontaneous
  Country: EG (occurrence: EG)
  Receive Date: 20221026
  Receipt Date: 20221107
  Transmission Date: 20230113
  Serious: Yes (Disabling, Other)
  Sender: FDA-Public Use
  Company Number: EG-NOVOPROD-970494

PATIENT
  Sex: Male

DRUGS (2)
  1. INSULIN HUMAN [Suspect]
     Active Substance: INSULIN HUMAN
     Indication: Diabetes mellitus
     Dosage: 55 IU, QD (30 IU/MORN. AND 25 IU/NIGHT)
     Route: 058
  2. SINOPRIL CO [Concomitant]
     Indication: Hypertension
     Dosage: 10 MG, QD

REACTIONS (4)
  - Optic nerve injury [Not Recovered/Not Resolved]
  - Blindness [Not Recovered/Not Resolved]
  - Blindness [Not Recovered/Not Resolved]
  - Hypoglycaemia [Not Recovered/Not Resolved]

NARRATIVE: CASE EVENT DATE: 20160101
